FAERS Safety Report 4826297-1 (Version None)
Quarter: 2005Q4

REPORT INFORMATION
  Report Type: 
  Country: None (occurrence: None)
  Receive Date: 20051014
  Receipt Date: 20050728
  Transmission Date: 20060501
  Serious: No
  Sender: FDA-Public Use
  Company Number: 2005SP002105

PATIENT
  Age: 41 Year
  Sex: Male
  Weight: 66.6788 kg

DRUGS (1)
  1. LUNESTA [Suspect]
     Indication: CIRCADIAN RHYTHM SLEEP DISORDER
     Dosage: 3 MG; HS; ORAL
     Route: 048
     Dates: start: 20050727

REACTIONS (1)
  - DYSGEUSIA [None]
